FAERS Safety Report 17925825 (Version 1)
Quarter: 2020Q2

REPORT INFORMATION
  Report Type: Spontaneous
  Country: US (occurrence: US)
  Receive Date: 20200622
  Receipt Date: 20200622
  Transmission Date: 20200714
  Serious: No
  Sender: FDA-Public Use
  Company Number: US-ALKERMES INC.-ALK-2020-002499

PATIENT
  Age: 37 Year
  Sex: Male

DRUGS (2)
  1. VIVITROL [Suspect]
     Active Substance: NALTREXONE
     Indication: ALCOHOLISM
     Dosage: 380 MILLIGRAM, QMO
     Route: 030
     Dates: start: 20200519, end: 20200615
  2. VIVITROL [Suspect]
     Active Substance: NALTREXONE
     Indication: WITHDRAWAL SYNDROME
     Dosage: 380 MILLIGRAM, QMO
     Route: 030
     Dates: start: 20200422

REACTIONS (5)
  - Bone pain [Unknown]
  - Arthralgia [Unknown]
  - Off label use [Recovered/Resolved]
  - Joint stiffness [Unknown]
  - Alcoholism [Unknown]

NARRATIVE: CASE EVENT DATE: 2020
